FAERS Safety Report 21007966 (Version 1)
Quarter: 2022Q2

REPORT INFORMATION
  Report Type: Spontaneous
  Country: US (occurrence: US)
  Receive Date: 20220627
  Receipt Date: 20220627
  Transmission Date: 20220721
  Serious: Yes (Other)
  Sender: FDA-Public Use
  Company Number: US-SA-SAC20220622001911

PATIENT
  Age: 61 Year
  Sex: Female

DRUGS (1)
  1. ZANTAC [Suspect]
     Active Substance: RANITIDINE HYDROCHLORIDE
     Indication: Dyspepsia
     Dosage: 300 MG  FREQUENCY: OTHER
     Route: 065
     Dates: start: 200302, end: 201912

REACTIONS (2)
  - Hepatic cancer [Unknown]
  - Pancreatic carcinoma stage 0 [Not Recovered/Not Resolved]

NARRATIVE: CASE EVENT DATE: 20210201
